FAERS Safety Report 18585951 (Version 2)
Quarter: 2020Q4

REPORT INFORMATION
  Report Type: Report from Study
  Country: DE (occurrence: DE)
  Receive Date: 20201207
  Receipt Date: 20201210
  Transmission Date: 20210114
  Serious: Yes (Death)
  Sender: FDA-Public Use
  Company Number: DE-PFIZER INC-2020470273

PATIENT
  Age: 31 Year
  Sex: Female

DRUGS (16)
  1. MORPHINE SULFATE. [Suspect]
     Active Substance: MORPHINE SULFATE
     Dosage: UNK
  2. BENZOYLECGONINE [Suspect]
     Active Substance: BENZOYLECGONINE
     Dosage: UNK
  3. CAFFEINE. [Suspect]
     Active Substance: CAFFEINE
     Dosage: UNK
  4. DIAZEPAM. [Suspect]
     Active Substance: DIAZEPAM
     Dosage: UNK
  5. NORDAZEPAM [Suspect]
     Active Substance: NORDAZEPAM
     Dosage: UNK
  6. CODEINE [Suspect]
     Active Substance: CODEINE
     Dosage: UNK
  7. METHADONE [Suspect]
     Active Substance: METHADONE HYDROCHLORIDE
     Dosage: UNK
  8. ETORICOXIB. [Suspect]
     Active Substance: ETORICOXIB
     Dosage: UNK
  9. OPIPRAMOL [Suspect]
     Active Substance: OPIPRAMOL
     Dosage: UNK
  10. TEMAZEPAM. [Suspect]
     Active Substance: TEMAZEPAM
     Dosage: UNK
  11. AMPHETAMINE [Suspect]
     Active Substance: AMPHETAMINE
     Dosage: UNK
  12. DIPHENHYDRAMINE. [Suspect]
     Active Substance: DIPHENHYDRAMINE
     Dosage: UNK
  13. TETRAMISOLE [Suspect]
     Active Substance: TETRAMISOLE
     Dosage: UNK
  14. CHLOROTHEOPHYLLINE [Suspect]
     Active Substance: CHLORTHEOPHYLLINE
     Dosage: UNK
  15. COCAINE [Suspect]
     Active Substance: COCAINE
     Dosage: UNK
  16. TETRAZEPAM [Suspect]
     Active Substance: TETRAZEPAM
     Dosage: UNK

REACTIONS (3)
  - Toxicity to various agents [Fatal]
  - Suspected suicide [Fatal]
  - Drug abuse [Fatal]
